FAERS Safety Report 21494765 (Version 2)
Quarter: 2022Q4

REPORT INFORMATION
  Report Type: Report from Study
  Country: US (occurrence: US)
  Receive Date: 20221021
  Receipt Date: 20221026
  Transmission Date: 20230112
  Serious: Yes (Death)
  Sender: FDA-Public Use
  Company Number: US-ABBVIE-4169879

PATIENT
  Sex: Male

DRUGS (2)
  1. VENCLEXTA [Suspect]
     Active Substance: VENETOCLAX
     Indication: Acute myelomonocytic leukaemia
     Dosage: TAKE 4 TABLET(S) BY MOUTH DAILY FOR 14 DAYS ON A 28 DAY CYCLE?FORM STRENGTH: 100 MILLIGRAM
     Route: 048
  2. VENCLEXTA [Suspect]
     Active Substance: VENETOCLAX
     Indication: Acute myelomonocytic leukaemia
     Dosage: TAKE 2 TABLET(S) BY MOUTH EVERY DAY ON DAYS 1-10 OF A 28 DAY CYCLE?FORM STRENGTH: 100 MILLIGRAM
     Route: 048
     Dates: start: 20210122

REACTIONS (2)
  - Acute myelomonocytic leukaemia [Fatal]
  - Off label use [Unknown]
